FAERS Safety Report 8036779-X (Version None)
Quarter: 2012Q1

REPORT INFORMATION
  Report Type: 
  Country: None (occurrence: None)
  Receive Date: 20120111
  Receipt Date: 20120104
  Transmission Date: 20120608
  Serious: Yes (Other)
  Sender: FDA-Public Use
  Company Number: VE-ROCHE-1028688

PATIENT
  Sex: Female

DRUGS (5)
  1. METICORTEN [Concomitant]
     Dates: start: 20111001
  2. MONTELUKAST SODIUM [Concomitant]
     Dates: start: 20111001
  3. SINGULAIR [Concomitant]
     Dates: start: 20111001
  4. XOLAIR [Suspect]
     Indication: PRODUCT USED FOR UNKNOWN INDICATION
     Dates: start: 20111001
  5. HYDROCORTISONE [Concomitant]
     Dates: start: 20111001

REACTIONS (1)
  - LARYNGEAL OEDEMA [None]
